FAERS Safety Report 6691564-6 (Version None)
Quarter: 2010Q2

REPORT INFORMATION
  Report Type: 
  Country: None (occurrence: None)
  Receive Date: 20100422
  Receipt Date: 20100412
  Transmission Date: 20101027
  Serious: Yes (Disabling, Other)
  Sender: FDA-Public Use
  Company Number: GB-TEVA-231181ISR

PATIENT
  Age: 81 Year
  Sex: Female

DRUGS (2)
  1. PRAVASTATIN [Suspect]
     Dates: start: 20100322
  2. PRAVASTATIN [Suspect]

REACTIONS (3)
  - ABNORMAL DREAMS [None]
  - AGGRESSION [None]
  - EMOTIONAL DISTRESS [None]
